FAERS Safety Report 6769350-8 (Version None)
Quarter: 2010Q2

REPORT INFORMATION
  Report Type: 
  Country: None (occurrence: None)
  Receive Date: 20100607
  Receipt Date: 20100525
  Transmission Date: 20101027
  Serious: Yes (Other)
  Sender: FDA-Public Use
  Company Number: B0658167A

PATIENT
  Sex: Female

DRUGS (6)
  1. FLUTICASONE PROPIONATE [Suspect]
     Indication: ASTHMA
     Dosage: 100 MCG/ THREE TIMES PER DAY / INHALED
     Dates: start: 20040101, end: 20060101
  2. FLUTICASONE PROPIONATE+SALMETEROL XINAFOATE [Suspect]
     Indication: ASTHMA
     Dosage: 250 MCG/ TWICE PER DAY / INHALED
     Dates: start: 20060101
  3. MONTELUKAST SODIUM [Concomitant]
  4. PREDNISOLONE [Concomitant]
  5. DEXAMETHASONE [Concomitant]
  6. MOMETASONE FUROATE [Concomitant]

REACTIONS (4)
  - ADRENAL SUPPRESSION [None]
  - ASTHMA [None]
  - EDUCATIONAL PROBLEM [None]
  - THERAPEUTIC RESPONSE DECREASED [None]
